FAERS Safety Report 7078382-4 (Version None)
Quarter: 2010Q4

REPORT INFORMATION
  Report Type: 
  Country: None (occurrence: None)
  Receive Date: 20101102
  Receipt Date: 20101028
  Transmission Date: 20110411
  Serious: Yes (Other)
  Sender: FDA-Public Use
  Company Number: US-WYE-H18438210

PATIENT
  Sex: Female
  Weight: 61.74 kg

DRUGS (3)
  1. PREMARIN [Suspect]
     Indication: HORMONE REPLACEMENT THERAPY
     Route: 048
     Dates: start: 19900101, end: 20101025
  2. PREMARIN [Suspect]
     Route: 048
     Dates: start: 20101025
  3. ALENDRONATE SODIUM [Concomitant]
     Dosage: UNKNOWN
     Route: 065
     Dates: end: 20100901

REACTIONS (7)
  - ANXIETY [None]
  - DIZZINESS [None]
  - MUSCULOSKELETAL CHEST PAIN [None]
  - MUSCULOSKELETAL PAIN [None]
  - PAIN IN JAW [None]
  - VISION BLURRED [None]
  - VOMITING [None]
